FAERS Safety Report 5409783-5 (Version None)
Quarter: 2007Q3

REPORT INFORMATION
  Report Type: 
  Country: None (occurrence: None)
  Receive Date: 20070809
  Receipt Date: 20070731
  Transmission Date: 20080115
  Serious: Yes (Life-Threatening)
  Sender: FDA-Public Use
  Company Number: GB-ROCHE-500260

PATIENT
  Age: 49 Year
  Sex: Male
  Weight: 141.9 kg

DRUGS (2)
  1. XENICAL [Suspect]
     Indication: OBESITY
     Route: 048
     Dates: start: 20070215, end: 20070301
  2. XENICAL [Suspect]
     Route: 048
     Dates: start: 20070611

REACTIONS (1)
  - MYOCARDIAL INFARCTION [None]
